FAERS Safety Report 4354268-0 (Version None)
Quarter: 2004Q2

REPORT INFORMATION
  Report Type: 
  Country: None (occurrence: None)
  Receive Date: 20040503
  Receipt Date: 20040405
  Transmission Date: 20050107
  Serious: Yes (Hospitalization)
  Sender: FDA-Public Use
  Company Number: 805#1#2004-00005

PATIENT
  Age: 80 Year
  Sex: Male

DRUGS (4)
  1. ALPROSTADIL [Suspect]
     Indication: ATHEROSCLEROSIS OBLITERANS
     Dosage: 1.80 MCQ (40MCG 2 IN 1 DAY (S); 120 MCQ [60MCQ 2 IN 1 DAYS (S)
     Route: 041
     Dates: start: 20040316, end: 20040321
  2. ALPROSTADIL [Suspect]
     Indication: ATHEROSCLEROSIS OBLITERANS
     Dosage: 1.80 MCQ (40MCG 2 IN 1 DAY (S); 120 MCQ [60MCQ 2 IN 1 DAYS (S)
     Route: 041
     Dates: start: 20040322, end: 20040329
  3. PIPERACILLIN SODIUM [Concomitant]
  4. GLUCOSE-SOLUTION-5% (GLUCOSE) [Suspect]
     Dosage: 500 ML (250ML 2 IN 1 DAY (S)
     Route: 041
     Dates: start: 20040316, end: 20040329

REACTIONS (17)
  - ALANINE AMINOTRANSFERASE INCREASED [None]
  - ASPARTATE AMINOTRANSFERASE INCREASED [None]
  - ATHEROSCLEROSIS OBLITERANS [None]
  - BLOOD ALKALINE PHOSPHATASE INCREASED [None]
  - BLOOD BILIRUBIN INCREASED [None]
  - BLOOD CREATINE PHOSPHOKINASE INCREASED [None]
  - BLOOD LACTATE DEHYDROGENASE INCREASED [None]
  - CARDIOVASCULAR DISORDER [None]
  - CONDITION AGGRAVATED [None]
  - GAMMA-GLUTAMYLTRANSFERASE INCREASED [None]
  - HAEMATOCRIT DECREASED [None]
  - HAEMOGLOBIN DECREASED [None]
  - HEPATIC FUNCTION ABNORMAL [None]
  - INFLAMMATION [None]
  - NECROSIS [None]
  - RED BLOOD CELL COUNT DECREASED [None]
  - WHITE BLOOD CELL COUNT INCREASED [None]
